FAERS Safety Report 14759047 (Version 2)
Quarter: 2021Q4

REPORT INFORMATION
  Report Type: Report from Study
  Country: FR (occurrence: FR)
  Receive Date: 20180413
  Receipt Date: 20211020
  Transmission Date: 20220303
  Serious: Yes (Hospitalization, Other)
  Sender: FDA-Public Use
  Company Number: FR-BAXALTA-2017BLT003684

PATIENT
  Age: 3 Year
  Sex: Female
  Weight: 12.7 kg

DRUGS (7)
  1. METHOTREXATE [Suspect]
     Active Substance: METHOTREXATE
     Indication: Product used for unknown indication
     Dosage: 12 MILLIGRAM (12 MG)
     Route: 037
     Dates: start: 20161221
  2. PREDNISONE [Suspect]
     Active Substance: PREDNISONE
     Indication: Acute lymphocytic leukaemia
     Dosage: 40 MILLIGRAM (40 MG, UNK)
     Route: 048
     Dates: start: 20161221, end: 20170121
  3. PEGASPARGASE [Suspect]
     Active Substance: PEGASPARGASE
     Indication: Acute lymphocytic leukaemia
     Dosage: 1575 INTERNATIONAL UNIT (1575 IU, UNK)
     Route: 042
     Dates: start: 20170101
  4. MERCAPTOPURINE [Suspect]
     Active Substance: MERCAPTOPURINE
     Indication: Acute lymphocytic leukaemia
     Dosage: 30 MILLIGRAM (30 MG, UNK)
     Route: 048
     Dates: start: 20170213
  5. DEXAMETHASONE [Suspect]
     Active Substance: DEXAMETHASONE
     Indication: Acute lymphocytic leukaemia
     Dosage: 6 MILLIGRAM/SQ. METER (6 MG/M2, UNK)
     Route: 048
     Dates: start: 20161228
  6. VINCRISTINE [Suspect]
     Active Substance: VINCRISTINE
     Indication: Acute lymphocytic leukaemia
     Dosage: 0.9 MILLIGRAM (0.9 MG, UNK)
     Route: 042
     Dates: start: 20161228
  7. METHOTREXATE [Suspect]
     Active Substance: METHOTREXATE
     Indication: Acute lymphocytic leukaemia
     Dosage: 15 MILLIGRAM (15 MG, UNK)
     Route: 048
     Dates: start: 20170220

REACTIONS (2)
  - Lipase increased [Recovered/Resolved]
  - Pancreatitis [Recovered/Resolved]

NARRATIVE: CASE EVENT DATE: 20170421
